FAERS Safety Report 4792378-4 (Version None)
Quarter: 2005Q4

REPORT INFORMATION
  Report Type: 
  Country: None (occurrence: None)
  Receive Date: 20051010
  Receipt Date: 20050929
  Transmission Date: 20060501
  Serious: Yes (Hospitalization)
  Sender: FDA-Public Use
  Company Number: CA-JNJFOC-20050901355

PATIENT
  Sex: Female
  Weight: 44.9 kg

DRUGS (11)
  1. REMICADE [Suspect]
     Route: 042
  2. REMICADE [Suspect]
     Route: 042
  3. REMICADE [Suspect]
     Indication: ANKYLOSING SPONDYLITIS
     Route: 042
  4. LUVOX [Concomitant]
     Indication: ANXIETY
     Route: 048
  5. GLUCOPHAGE [Concomitant]
     Route: 048
  6. ESTRADIOL [Concomitant]
     Indication: MENOPAUSE
     Route: 048
  7. METHOTREXATE [Concomitant]
     Indication: ANKYLOSING SPONDYLITIS
     Route: 048
  8. IBUPROFEN [Concomitant]
  9. PROVERA [Concomitant]
     Indication: MENOPAUSE
     Route: 048
  10. ELAVIL [Concomitant]
     Indication: SLEEP DISORDER THERAPY
     Route: 048
  11. TYLENOL (CAPLET) [Concomitant]

REACTIONS (2)
  - FALL [None]
  - LOWER LIMB FRACTURE [None]
